FAERS Safety Report 4879158-6 (Version None)
Quarter: 2006Q1

REPORT INFORMATION
  Report Type: 
  Country: None (occurrence: None)
  Receive Date: 20060112
  Receipt Date: 20051208
  Transmission Date: 20060701
  Serious: Yes (Death)
  Sender: FDA-Public Use
  Company Number: US-ROCHE-427878

PATIENT
  Sex: Female

DRUGS (1)
  1. ISOTRETINOIN [Suspect]
     Indication: DRUG USE FOR UNKNOWN INDICATION

REACTIONS (14)
  - ANOMALY OF MIDDLE EAR CONGENITAL [None]
  - AORTIC DISORDER [None]
  - AREFLEXIA [None]
  - CARDIAC MURMUR [None]
  - CLEFT PALATE [None]
  - CONGENITAL EYE DISORDER [None]
  - DOUBLE OUTLET RIGHT VENTRICLE [None]
  - DRUG EXPOSURE DURING PREGNANCY [None]
  - LOW SET EARS [None]
  - MUSCLE DISORDER [None]
  - PATENT DUCTUS ARTERIOSUS [None]
  - PSEUDOTRUNCUS ARTERIOSUS [None]
  - TERATOGENICITY [None]
  - VENTRICULAR SEPTAL DEFECT [None]
